FAERS Safety Report 5759520-X (Version None)
Quarter: 2008Q2

REPORT INFORMATION
  Report Type: 
  Country: None (occurrence: None)
  Receive Date: 20080604
  Receipt Date: 20080604
  Transmission Date: 20081010
  Serious: Yes (Death)
  Sender: FDA-Public Use
  Company Number: None

PATIENT
  Sex: Male
  Weight: 79.3795 kg

DRUGS (1)
  1. DIGITEK 250 MCG MYLAN BRAND [Suspect]
     Indication: HEART RATE IRREGULAR
     Dosage: 250 MCG 1 A DAY
     Dates: start: 20080115, end: 20080210

REACTIONS (1)
  - PALPITATIONS [None]
